FAERS Safety Report 4497929-5 (Version None)
Quarter: 2004Q4

REPORT INFORMATION
  Report Type: 
  Country: None (occurrence: None)
  Receive Date: 20041105
  Receipt Date: 20041027
  Transmission Date: 20050328
  Serious: Yes (Hospitalization)
  Sender: FDA-Public Use
  Company Number: 2004UW22222

PATIENT
  Age: 58 Year
  Sex: Male
  Weight: 52.1637 kg

DRUGS (5)
  1. IRESSA [Suspect]
     Indication: CARCINOMA
     Dosage: 250 MG QD PO
     Route: 048
     Dates: start: 20040414, end: 20040610
  2. OXYCODONE HCL [Concomitant]
  3. PHENERGAN [Suspect]
  4. NEXIUM [Concomitant]
  5. METOPROLOL [Concomitant]

REACTIONS (7)
  - ASTHENIA [None]
  - CARCINOID SYNDROME [None]
  - MALIGNANT NEOPLASM PROGRESSION [None]
  - NAUSEA [None]
  - RENAL FAILURE ACUTE [None]
  - SYNCOPE [None]
  - VOMITING [None]
